FAERS Safety Report 25584465 (Version 2)
Quarter: 2025Q3

REPORT INFORMATION
  Report Type: Report from Study
  Country: US (occurrence: US)
  Receive Date: 20250721
  Receipt Date: 20250721
  Transmission Date: 20251021
  Serious: No
  Sender: BIOCON
  Company Number: US-MYLANLABS-2023M1108248

PATIENT
  Sex: Female

DRUGS (2)
  1. FULPHILA [Suspect]
     Active Substance: PEGFILGRASTIM-JMDB
     Indication: Neoplasm malignant
     Route: 065
  2. DEVICE [Suspect]
     Active Substance: DEVICE
     Indication: Neoplasm malignant

REACTIONS (2)
  - Full blood count decreased [Unknown]
  - Illness [Unknown]
